FAERS Safety Report 9397960 (Version 1)
Quarter: 2013Q3

REPORT INFORMATION
  Report Type: Spontaneous
  Country: JP (occurrence: JP)
  Receive Date: 20130712
  Receipt Date: 20130712
  Transmission Date: 20140515
  Serious: Yes (Hospitalization)
  Sender: FDA-Public Use
  Company Number: JP-B.I. PHARMACEUTICALS,INC./RIDGEFIELD-2013-BI-20284NB

PATIENT
  Age: 88 Year
  Sex: 0

DRUGS (6)
  1. BI-SIFROL [Suspect]
     Indication: PARKINSON^S DISEASE
     Dosage: 0.375 MG
     Route: 048
  2. BI-SIFROL [Suspect]
     Dosage: 1.5 MG
     Route: 048
  3. SLOW-K [Suspect]
     Route: 048
  4. NEODOPASTON [Concomitant]
     Indication: PARKINSON^S DISEASE
     Route: 048
  5. SYMMETREL [Concomitant]
     Indication: PARKINSON^S DISEASE
     Dosage: 300 MG
     Route: 048
  6. ANTIHYPERTENSIVES [Concomitant]
     Route: 048

REACTIONS (4)
  - Cerebral infarction [Unknown]
  - Cerebral haemorrhage [Unknown]
  - Nausea [Unknown]
  - Vomiting [Unknown]
